FAERS Safety Report 25150576 (Version 1)
Quarter: 2025Q2

REPORT INFORMATION
  Report Type: Spontaneous
  Country: AU (occurrence: AU)
  Receive Date: 20250402
  Receipt Date: 20250402
  Transmission Date: 20250717
  Serious: Yes (Hospitalization, Other)
  Sender: ALEXION PHARMACEUTICALS
  Company Number: AU-ASTRAZENECA-202501OCE000880AU

PATIENT
  Age: 59 Year

DRUGS (18)
  1. FULVESTRANT [Suspect]
     Active Substance: FULVESTRANT
     Indication: Breast cancer
  2. FULVESTRANT [Suspect]
     Active Substance: FULVESTRANT
  3. FULVESTRANT [Suspect]
     Active Substance: FULVESTRANT
  4. FULVESTRANT [Suspect]
     Active Substance: FULVESTRANT
  5. FULVESTRANT [Suspect]
     Active Substance: FULVESTRANT
  6. FULVESTRANT [Suspect]
     Active Substance: FULVESTRANT
  7. FULVESTRANT [Suspect]
     Active Substance: FULVESTRANT
  8. FULVESTRANT [Suspect]
     Active Substance: FULVESTRANT
  9. FULVESTRANT [Suspect]
     Active Substance: FULVESTRANT
  10. FULVESTRANT [Suspect]
     Active Substance: FULVESTRANT
  11. OXYCODONE HYDROCHLORIDE [Concomitant]
     Active Substance: OXYCODONE HYDROCHLORIDE
     Indication: Lymphoedema
  12. ATORVASTATIN [Concomitant]
     Active Substance: ATORVASTATIN
     Indication: Hypercholesterolaemia
  13. DOCUSATE SODIUM [Concomitant]
     Active Substance: DOCUSATE SODIUM
     Indication: Constipation
  14. FUROSEMIDE [Concomitant]
     Active Substance: FUROSEMIDE
     Indication: Lymphoedema
  15. METOCLOPRAMIDE [Concomitant]
     Active Substance: METOCLOPRAMIDE
     Indication: Nausea
  16. ACECLOFENAC\ACETAMINOPHEN [Concomitant]
     Active Substance: ACECLOFENAC\ACETAMINOPHEN
     Indication: Headache
  17. ACECLOFENAC\ACETAMINOPHEN [Concomitant]
     Active Substance: ACECLOFENAC\ACETAMINOPHEN
     Indication: Breast pain
  18. POTASSIUM CHLORIDE [Concomitant]
     Active Substance: POTASSIUM CHLORIDE
     Indication: Prophylaxis

REACTIONS (1)
  - Hypokalaemia [Recovered/Resolved]
